FAERS Safety Report 8782674 (Version 2)
Quarter: 2013Q1

REPORT INFORMATION
  Report Type: Spontaneous
  Country: DE (occurrence: DE)
  Receive Date: 20120913
  Receipt Date: 20130101
  Transmission Date: 20140127
  Serious: Yes (Life-Threatening, Hospitalization, Other)
  Sender: FDA-Public Use
  Company Number: DE-UCBSA-065426

PATIENT
  Age: 56 None
  Sex: Female
  Weight: 66 kg

DRUGS (7)
  1. KEPPRA [Suspect]
     Indication: EPILEPSY
     Dosage: START DATE: SEVERAL MONTHS AGO
     Route: 048
     Dates: end: 201202
  2. TEMODAL [Suspect]
     Indication: GLIOBLASTOMA MULTIFORME
     Dosage: DAILY DOSE: 150 MG/M2 MG/SQ.METER, 7 DAYS ON/7 DAYS OFF
     Route: 048
     Dates: start: 20111111, end: 20120210
  3. TEMODAL [Suspect]
     Indication: GLIOBLASTOMA MULTIFORME
     Dosage: 1ST CYCLE 150 MG/M2 BODY SURFACE AREA
     Dates: start: 20111012, end: 20111016
  4. TEMODAL [Suspect]
     Indication: GLIOBLASTOMA MULTIFORME
     Dosage: 75 MG/M2 (1.75M2 BS=115 MG TEMOZOLOMIDE), ALONG WITH RADIOTHERAPY
     Dates: start: 20110802, end: 20110913
  5. PANTAZOL [Concomitant]
     Indication: PROPHYLAXIS AGAINST GASTROINTESTINAL ULCER
     Dosage: START DATE: SEVERAL MONTHS AGO
     Dates: end: 201202
  6. PANTAZOL [Concomitant]
     Indication: PROPHYLAXIS AGAINST GASTROINTESTINAL ULCER
     Dates: start: 2012
  7. FORTECORTIN [Concomitant]
     Indication: PERITUMOURAL OEDEMA
     Dosage: START DATE: SEVERAL MONTHS AGO

REACTIONS (6)
  - Pancytopenia [Not Recovered/Not Resolved]
  - Bone marrow toxicity [Unknown]
  - Aplastic anaemia [Unknown]
  - Febrile infection [Unknown]
  - Grand mal convulsion [Unknown]
  - Fall [Unknown]
